FAERS Safety Report 7956434-1 (Version None)
Quarter: 2011Q4

REPORT INFORMATION
  Report Type: 
  Country: None (occurrence: None)
  Receive Date: 20111130
  Receipt Date: 20111114
  Transmission Date: 20120403
  Serious: Yes (Other)
  Sender: FDA-Public Use
  Company Number: TPA2011A07674

PATIENT
  Age: 81 Year
  Sex: Female
  Weight: 90.7194 kg

DRUGS (11)
  1. PLAVIX [Concomitant]
  2. ACTOS [Suspect]
     Indication: TYPE 2 DIABETES MELLITUS
     Dosage: 45 MG, 1 IN 1 D, PER ORAL
     Route: 048
     Dates: start: 20091201, end: 20110901
  3. METANX (PYRIDOXINE HYDROCHLORIDE, FOLIC ACID, VITAMIN B12 NOS) [Concomitant]
  4. SIMVASTATIN [Concomitant]
  5. FUROSEMIDE [Concomitant]
  6. METOPROLOL TARTRATE [Concomitant]
  7. LEVOTHYROXINE SODIUM [Concomitant]
  8. OSCAL (CALCIUM CARBONATE) [Concomitant]
  9. ULORIC [Concomitant]
  10. ISOSORBIDE MONONITRATE [Concomitant]
  11. ASPIRIN [Concomitant]

REACTIONS (5)
  - OEDEMA PERIPHERAL [None]
  - DYSPNOEA [None]
  - CHEST PAIN [None]
  - GAIT DISTURBANCE [None]
  - WEIGHT INCREASED [None]
